FAERS Safety Report 7998595-4 (Version None)
Quarter: 2011Q4

REPORT INFORMATION
  Report Type: 
  Country: None (occurrence: None)
  Receive Date: 20111221
  Receipt Date: 20111212
  Transmission Date: 20120403
  Serious: Yes (Other)
  Sender: FDA-Public Use
  Company Number: US-BAYER-2011-046185

PATIENT
  Age: 25 Year
  Sex: Female
  Weight: 81 kg

DRUGS (3)
  1. TORADOL [Concomitant]
  2. DRUGS FOR FUNCTIONAL GASTROINTEST. DISORDERS [Concomitant]
  3. YASMIN [Suspect]
     Dosage: UNK
     Route: 048
     Dates: start: 20041111, end: 20070924

REACTIONS (6)
  - PAIN [None]
  - EMOTIONAL DISTRESS [None]
  - ANHEDONIA [None]
  - VOMITING [None]
  - CHOLELITHIASIS [None]
  - CHOLECYSTITIS CHRONIC [None]
